FAERS Safety Report 7741999-5 (Version None)
Quarter: 2011Q3

REPORT INFORMATION
  Report Type: 
  Country: None (occurrence: None)
  Receive Date: 20110912
  Receipt Date: 20110831
  Transmission Date: 20111222
  Serious: Yes (Hospitalization)
  Sender: FDA-Public Use
  Company Number: FR-JNJFOC-20110901464

PATIENT
  Sex: Female

DRUGS (11)
  1. PREDNISOLONE [Concomitant]
     Dosage: TWICE A DAY
     Route: 048
  2. HEPTAMINOL HYDROCHLORIDE [Concomitant]
     Dosage: THREE TIMES A DAY
     Route: 048
  3. NEXEN [Concomitant]
     Route: 048
  4. ACETAMINOPHEN [Concomitant]
     Route: 048
  5. TAXOL [Concomitant]
     Route: 042
     Dates: start: 20110316
  6. TRAMADOL HCL [Concomitant]
     Route: 048
  7. RISPERDAL [Suspect]
     Indication: PRODUCT USED FOR UNKNOWN INDICATION
     Dosage: 2 MG ONCE A DAY
     Route: 048
  8. VALPROIC ACID [Concomitant]
     Dosage: THREE TIMES A DAY
     Route: 048
  9. AVASTIN [Suspect]
     Indication: PRODUCT USED FOR UNKNOWN INDICATION
     Route: 042
     Dates: start: 20110408, end: 20110408
  10. CARBOPLATIN [Concomitant]
     Dosage: ONCE
     Route: 042
     Dates: start: 20110316
  11. LEVOTHYROXINE SODIUM [Concomitant]
     Dosage: PER DAY
     Route: 048

REACTIONS (1)
  - PULMONARY EMBOLISM [None]
